FAERS Safety Report 7550199-3 (Version None)
Quarter: 2011Q2

REPORT INFORMATION
  Report Type: 
  Country: None (occurrence: None)
  Receive Date: 20110615
  Receipt Date: 20110608
  Transmission Date: 20111010
  Serious: Yes (Other)
  Sender: FDA-Public Use
  Company Number: BR-PFIZER INC-2010066596

PATIENT
  Age: 72 Year
  Sex: Female
  Weight: 53 kg

DRUGS (13)
  1. VARENICLINE TARTRATE [Suspect]
     Dosage: 1 MG, 1X/DAY
     Route: 048
     Dates: start: 20100510, end: 20100501
  2. LOVAZA [Concomitant]
     Indication: ROUTINE HEALTH MAINTENANCE
     Dosage: 2 DF, DAILY
  3. BUSCOPAN COMPOSITUM [Concomitant]
     Dosage: UNK
  4. HYOSCINE BUTYLBROMIDE [Concomitant]
  5. VARENICLINE TARTRATE [Suspect]
     Indication: TOBACCO USER
     Dosage: UNK
     Route: 048
     Dates: start: 20100501, end: 20100501
  6. VARENICLINE TARTRATE [Suspect]
     Dosage: 1 MG, 2X/DAY,
     Route: 048
     Dates: start: 20100501, end: 20100101
  7. OMEPRAZOLE [Concomitant]
     Indication: ABDOMINAL PAIN UPPER
     Dosage: 1 DF, 1X/DAY
  8. BROMOPRIDE [Concomitant]
     Dosage: UNK
  9. CLONAZEPAM [Concomitant]
     Indication: TREMOR
     Dosage: 1 MG, 2X/DAY (AT NIGHT)
  10. PROPRANOLOL HYDROCHLORIDE [Concomitant]
     Dosage: 3 TABLETS OF 40MG PER DAY
  11. PROPRANOLOL [Concomitant]
     Indication: TREMOR
     Dosage: 120 MG, 1X/DAY
  12. SERTRALINE HYDROCHLORIDE [Concomitant]
     Indication: DEPRESSION
     Dosage: 25 MG, 2X/DAY
  13. LOVAZA [Concomitant]
     Indication: TREMOR

REACTIONS (2)
  - GASTROINTESTINAL DISORDER [None]
  - SUICIDAL IDEATION [None]
